FAERS Safety Report 7606944-1 (Version None)
Quarter: 2011Q3

REPORT INFORMATION
  Report Type: 
  Country: None (occurrence: None)
  Receive Date: 20110706
  Receipt Date: 20110627
  Transmission Date: 20111222
  Serious: Yes (Hospitalization, Other)
  Sender: FDA-Public Use
  Company Number: 2011002336

PATIENT
  Age: 79 Year
  Sex: Male
  Weight: 68 kg

DRUGS (16)
  1. TEKUTURNA (ALISKIREN) [Concomitant]
  2. SIMVASTATIN (SIMVASTIN) [Concomitant]
  3. VITAMIN D [Concomitant]
  4. TARCEVA [Suspect]
     Indication: NON-SMALL CELL LUNG CANCER STAGE IV
     Dosage: SEE IMAGE
     Route: 048
     Dates: start: 20110421, end: 20110509
  5. TARCEVA [Suspect]
     Indication: NON-SMALL CELL LUNG CANCER STAGE IV
     Dosage: SEE IMAGE
     Route: 048
     Dates: start: 20110405, end: 20110420
  6. TARCEVA [Suspect]
     Indication: NON-SMALL CELL LUNG CANCER STAGE IV
     Dosage: SEE IMAGE
     Route: 048
     Dates: start: 20110301, end: 20110328
  7. TARCEVA [Suspect]
     Indication: NON-SMALL CELL LUNG CANCER STAGE IV
     Dosage: SEE IMAGE
     Route: 048
     Dates: start: 20110421, end: 20110509
  8. TARCEVA [Suspect]
     Indication: NON-SMALL CELL LUNG CANCER STAGE IV
     Dosage: SEE IMAGE
     Route: 048
     Dates: start: 20110301
  9. DOXAZOSIN MESYLATE (DOZAXOSIN MESILATE) [Concomitant]
  10. ZOLPIDEM TARTRATE [Concomitant]
  11. ATENOLOL [Concomitant]
  12. LISINOPRIL [Concomitant]
  13. CLINDAMYCIN PHOSPHATE (CLINADAMYCIN PHOSPHATE) LOTION [Concomitant]
  14. DOXYCYCLINE HYCLATE (DOXYCYCLINE HYCLATE) [Concomitant]
  15. TARCEVA [Suspect]
  16. AMLODIPINE BESYLATE [Concomitant]

REACTIONS (12)
  - DIARRHOEA [None]
  - ACUTE PRERENAL FAILURE [None]
  - DRUG INEFFECTIVE [None]
  - DEHYDRATION [None]
  - RENAL FAILURE ACUTE [None]
  - DECREASED APPETITE [None]
  - RASH [None]
  - WEIGHT DECREASED [None]
  - METABOLIC ACIDOSIS [None]
  - LETHARGY [None]
  - ANAEMIA OF CHRONIC DISEASE [None]
  - FEELING COLD [None]
